FAERS Safety Report 9550047 (Version 1)
Quarter: 2013Q3

REPORT INFORMATION
  Report Type: Spontaneous
  Country: US (occurrence: US)
  Receive Date: 20130924
  Receipt Date: 20130924
  Transmission Date: 20140515
  Serious: No
  Sender: FDA-Public Use
  Company Number: US-009507513-1302USA010381

PATIENT
  Age: 27 Year
  Sex: Female
  Weight: 63.95 kg

DRUGS (4)
  1. MK-8415 [Suspect]
     Indication: CONTRACEPTION
     Dosage: 1 DF
     Route: 059
     Dates: start: 201203, end: 20130131
  2. MK-8415 [Suspect]
     Dosage: 1 DF
     Dates: start: 201203, end: 201203
  3. MK-8415 [Suspect]
     Dosage: 1 DF,
     Route: 059
     Dates: start: 201203, end: 20130131
  4. PROGESTERONE [Concomitant]

REACTIONS (10)
  - Neuralgia [Not Recovered/Not Resolved]
  - Mood swings [Recovering/Resolving]
  - Medical device complication [Unknown]
  - Device difficult to use [Unknown]
  - Device deployment issue [Unknown]
  - Overdose [Unknown]
  - Scar [Unknown]
  - Device difficult to use [Unknown]
  - Product quality issue [Unknown]
  - Medical device complication [Unknown]
